FAERS Safety Report 7778391-3 (Version None)
Quarter: 2011Q3

REPORT INFORMATION
  Report Type: 
  Country: None (occurrence: None)
  Receive Date: 20110926
  Receipt Date: 20110922
  Transmission Date: 20111222
  Serious: Yes (Hospitalization)
  Sender: FDA-Public Use
  Company Number: US-GLAXOSMITHKLINE-A0886828A

PATIENT
  Age: 38 Year
  Sex: Female
  Weight: 106.8 kg

DRUGS (5)
  1. AVANDAMET [Suspect]
     Indication: DIABETES MELLITUS
     Route: 048
  2. NUVARING [Concomitant]
  3. AVANDIA [Suspect]
     Indication: DIABETES MELLITUS
     Dosage: 4MG PER DAY
     Route: 048
     Dates: start: 20040101, end: 20050101
  4. PEPCID [Concomitant]
  5. DIOVAN [Concomitant]

REACTIONS (5)
  - CEREBROVASCULAR ACCIDENT [None]
  - ISCHAEMIA [None]
  - ACUTE CORONARY SYNDROME [None]
  - TRICUSPID VALVE INCOMPETENCE [None]
  - LEFT VENTRICULAR HYPERTROPHY [None]
